FAERS Safety Report 5064085-4 (Version None)
Quarter: 2006Q3

REPORT INFORMATION
  Report Type: 
  Country: None (occurrence: None)
  Receive Date: 20060706
  Receipt Date: 20060313
  Transmission Date: 20061208
  Serious: No
  Sender: FDA-Public Use
  Company Number: 200611440BWH

PATIENT
  Age: 53 Year
  Sex: Male

DRUGS (6)
  1. LEVITRA [Suspect]
     Indication: ERECTILE DYSFUNCTION
     Dosage: 5 MG, TOTAL DAILY, ORAL
     Route: 048
     Dates: start: 20050701
  2. TRAZODONE HCL [Concomitant]
  3. CYMBALTA [Concomitant]
  4. ZETIA [Concomitant]
  5. LOVASTATIN [Concomitant]
  6. ZYRTEC [Concomitant]

REACTIONS (3)
  - ERECTION INCREASED [None]
  - PENILE PAIN [None]
  - SPONTANEOUS PENILE ERECTION [None]
